FAERS Safety Report 5063032-9 (Version None)
Quarter: 2006Q3

REPORT INFORMATION
  Report Type: 
  Country: None (occurrence: None)
  Receive Date: 20060724
  Receipt Date: 20060630
  Transmission Date: 20061208
  Serious: Yes (Hospitalization)
  Sender: FDA-Public Use
  Company Number: 2006RR-02891

PATIENT
  Age: 68 Year
  Sex: Male

DRUGS (1)
  1. SIMVASTATIN [Suspect]
     Indication: HYPERCHOLESTEROLAEMIA
     Dosage: 20 MG, QD, ORAL
     Route: 048
     Dates: start: 19990101

REACTIONS (16)
  - AREFLEXIA [None]
  - ASPIRATION [None]
  - DERMATOMYOSITIS [None]
  - DYSPHAGIA [None]
  - ECZEMA [None]
  - EXFOLIATIVE RASH [None]
  - FATIGUE [None]
  - MALAISE [None]
  - MYOPATHY [None]
  - OEDEMA PERIPHERAL [None]
  - PANCYTOPENIA [None]
  - PITTING OEDEMA [None]
  - POST PROCEDURAL COMPLICATION [None]
  - PUPILS UNEQUAL [None]
  - RASH ERYTHEMATOUS [None]
  - WEIGHT DECREASED [None]
